FAERS Safety Report 10197330 (Version 1)
Quarter: 2014Q2

REPORT INFORMATION
  Report Type: Spontaneous
  Country: US (occurrence: None)
  Receive Date: 20140523
  Receipt Date: 20140523
  Transmission Date: 20141212
  Serious: Yes (Life-Threatening, Other)
  Sender: FDA-Public Use
  Company Number: None

PATIENT
  Age: 34 Year
  Sex: Female
  Weight: 99.79 kg

DRUGS (6)
  1. VIIBRYD [Suspect]
     Indication: DEPRESSION
     Dosage: 1, DAILY, BY MOUTH
     Route: 048
     Dates: start: 201401, end: 201403
  2. ABILIFY [Concomitant]
  3. WELLBUTRIN [Concomitant]
  4. MULTIVITAMIN [Concomitant]
  5. CALCIUM [Concomitant]
  6. IRON [Concomitant]

REACTIONS (2)
  - Suicidal ideation [None]
  - Bipolar disorder [None]
